FAERS Safety Report 8299244-0 (Version None)
Quarter: 2012Q2

REPORT INFORMATION
  Report Type: 
  Country: None (occurrence: None)
  Receive Date: 20120419
  Receipt Date: 20120413
  Transmission Date: 20120825
  Serious: No
  Sender: FDA-Public Use
  Company Number: US-PFIZER INC-2012093609

PATIENT

DRUGS (24)
  1. LYRICA [Suspect]
     Dosage: 75 MG, 2X/DAY
     Route: 048
  2. PRAVACHOL [Suspect]
     Dosage: UNK
     Dates: end: 20070804
  3. CYMBALTA [Concomitant]
     Dosage: 60 MG, 1 MORNING- 1NIGHT
     Dates: start: 20071217
  4. SAVELLA [Concomitant]
     Dosage: UNK
  5. LIPITOR [Suspect]
     Dosage: UNK
     Dates: end: 20070804
  6. ACETYLSALICYLIC ACID [Concomitant]
     Dosage: 81 MG, 1NIGHT
  7. PAXIL [Suspect]
     Dosage: UNK
     Dates: end: 20071207
  8. MINOCYCLINE HYDROCHLORIDE [Concomitant]
     Dosage: 100 MG, 1BEDTIME
  9. CALCIUM [Concomitant]
     Dosage: 600 MG, 1NIGHT
  10. ZOCOR [Suspect]
     Dosage: UNK
     Dates: end: 20070804
  11. CIPROFLOXACIN [Concomitant]
     Dosage: UNK
  12. JANUVIA [Concomitant]
     Dosage: 100 MG, 1MORNING
  13. METFORMIN [Concomitant]
     Dosage: 500 MG, 2 MORNING 2 NIGHT
  14. MULTI-VITAMINS [Concomitant]
     Dosage: UNK, 1MORNING
  15. LOVAZA [Concomitant]
     Dosage: 300 MG, 1MORNING
  16. VITAMIN B-12 [Concomitant]
     Dosage: 2500 MG, 1NIGHT
  17. TRICOR [Suspect]
     Dosage: UNK
     Dates: end: 20070804
  18. SOTALOL HYDROCHLORIDE [Concomitant]
     Dosage: 80 MG, 1 MORNING- 1NIGHT
     Dates: start: 20091116
  19. CRESTOR [Suspect]
     Dosage: UNK
     Dates: end: 20070804
  20. LOSARTAN [Concomitant]
     Dosage: 50 MG, 1MORNING
  21. ZETIA [Concomitant]
     Dosage: 10 MG, 1MORNING
  22. GLYBURIDE [Concomitant]
     Dosage: 2.5 MG,  2 MORNING 2 NIGHT
  23. ASCORBIC ACID [Concomitant]
     Dosage: 500 MG, 1NIGHT
  24. LANTUS [Concomitant]
     Dosage: 10 UNIT BEDTIME

REACTIONS (3)
  - MYALGIA [None]
  - MUSCULAR WEAKNESS [None]
  - MUSCULOSKELETAL STIFFNESS [None]
